FAERS Safety Report 21323141 (Version 3)
Quarter: 2022Q3

REPORT INFORMATION
  Report Type: Spontaneous
  Country: NO (occurrence: NO)
  Receive Date: 20220912
  Receipt Date: 20220923
  Transmission Date: 20221027
  Serious: Yes (Other)
  Sender: FDA-Public Use
  Company Number: NO-BAYER-2022A124101

PATIENT
  Age: 28 Year
  Sex: Female

DRUGS (1)
  1. MIRENA [Suspect]
     Active Substance: LEVONORGESTREL
     Indication: Contraception
     Dosage: 20?G/DAY
     Route: 015
     Dates: end: 20220902

REACTIONS (5)
  - Device breakage [Recovered/Resolved]
  - Device malfunction [None]
  - Complication of device removal [None]
  - Device difficult to use [None]
  - Post procedural discomfort [None]

NARRATIVE: CASE EVENT DATE: 20220902
